FAERS Safety Report 16495601 (Version 5)
Quarter: 2020Q1

REPORT INFORMATION
  Report Type: Spontaneous
  Country: US (occurrence: US)
  Receive Date: 20190628
  Receipt Date: 20200206
  Transmission Date: 20200409
  Serious: No
  Sender: FDA-Public Use
  Company Number: US-PFIZER INC-2019276907

PATIENT
  Age: 68 Year
  Sex: Female
  Weight: 61.69 kg

DRUGS (3)
  1. IBRANCE [Suspect]
     Active Substance: PALBOCICLIB
     Indication: BREAST CANCER METASTATIC
     Dosage: 125 MG, CYCLIC (ONCE A DAY FOR 21 DAYS)
     Route: 048
     Dates: start: 201901, end: 2019
  2. IBRANCE [Suspect]
     Active Substance: PALBOCICLIB
     Dosage: 100 MG, DAILY [21 DAYS, BY MOUTH]
     Route: 048
     Dates: start: 201901, end: 201911
  3. IBRANCE [Suspect]
     Active Substance: PALBOCICLIB
     Dosage: 100 MG, CYCLIC (100 MG, 21 DAYS)
     Route: 048
     Dates: start: 2019, end: 2019

REACTIONS (4)
  - Blister [Not Recovered/Not Resolved]
  - Neoplasm progression [Unknown]
  - Fatigue [Unknown]
  - White blood cell count decreased [Unknown]

NARRATIVE: CASE EVENT DATE: 2019
